FAERS Safety Report 25316955 (Version 1)
Quarter: 2025Q2

REPORT INFORMATION
  Report Type: Spontaneous
  Country: IT (occurrence: IT)
  Receive Date: 20250515
  Receipt Date: 20250515
  Transmission Date: 20250717
  Serious: Yes (Other)
  Sender: ROCHE
  Company Number: IT-ROCHE-10000280670

PATIENT
  Age: 52 Year
  Sex: Male

DRUGS (1)
  1. COLUMVI [Suspect]
     Active Substance: GLOFITAMAB-GXBM
     Indication: Diffuse large B-cell lymphoma
     Route: 042
     Dates: start: 20250401

REACTIONS (2)
  - Cytokine release syndrome [Recovered/Resolved]
  - Diffuse large B-cell lymphoma recurrent [Unknown]
